FAERS Safety Report 8883429 (Version 1)
Quarter: 2012Q4

REPORT INFORMATION
  Report Type: 
  Country: DE (occurrence: DE)
  Receive Date: 20121102
  Receipt Date: 20121102
  Transmission Date: 20130627
  Serious: Yes (Death, Other)
  Sender: FDA-Public Use
  Company Number: DE-CELGENEUS-062-21880-12103647

PATIENT

DRUGS (5)
  1. REVLIMID [Suspect]
     Indication: MULTIPLE MYELOMA
     Route: 048
  2. REVLIMID [Suspect]
     Route: 048
  3. CYCLOSPORINE A [Concomitant]
     Indication: PROPHYLAXIS
     Route: 065
  4. TACROLIMUS [Concomitant]
     Indication: PROPHYLAXIS
     Route: 065
  5. MYCOPHENOLATEMOFETIL [Concomitant]
     Indication: PROPHYLAXIS
     Route: 065

REACTIONS (5)
  - Graft versus host disease [Unknown]
  - Diarrhoea [Fatal]
  - Pancreatitis [Recovered/Resolved]
  - Anaemia [Unknown]
  - Hypocalcaemia [Unknown]
